FAERS Safety Report 4387865-7 (Version None)
Quarter: 2004Q2

REPORT INFORMATION
  Report Type: 
  Country: None (occurrence: None)
  Receive Date: 20040630
  Receipt Date: 20040113
  Transmission Date: 20050107
  Serious: Yes (Disabling)
  Sender: FDA-Public Use
  Company Number: CH-AMGEN-UK063496

PATIENT
  Sex: Male
  Weight: 66 kg

DRUGS (10)
  1. ARANESP [Suspect]
     Indication: RENAL FAILURE CHRONIC
     Route: 042
     Dates: start: 20030825, end: 20040105
  2. INSULIN [Concomitant]
  3. CALCIUM CARBONATE [Concomitant]
  4. ATACAND [Concomitant]
  5. ISOKET [Concomitant]
  6. CARNITINE [Concomitant]
     Route: 042
  7. CORVATON [Concomitant]
  8. ASPIRIN [Concomitant]
  9. SODIUM POLYSTYRENE SULFONATE [Concomitant]
  10. VENOFER [Concomitant]

REACTIONS (2)
  - ANAEMIA [None]
  - BLOOD PARATHYROID HORMONE INCREASED [None]
